FAERS Safety Report 7678159-2 (Version None)
Quarter: 2011Q3

REPORT INFORMATION
  Report Type: 
  Country: None (occurrence: None)
  Receive Date: 20110811
  Receipt Date: 20110810
  Transmission Date: 20111222
  Serious: Yes (Death, Hospitalization)
  Sender: FDA-Public Use
  Company Number: JP-EISAI INC-E2020-09520-CLI-JP

PATIENT
  Sex: Male

DRUGS (10)
  1. PERSANTIN [Concomitant]
     Route: 048
     Dates: end: 20110418
  2. ASPIRIN [Concomitant]
     Route: 048
     Dates: end: 20110418
  3. PRAMIPEXOLE DIHYDROCHLORIDE [Concomitant]
     Route: 048
     Dates: start: 20101111, end: 20110418
  4. MAGNESIUM SULFATE [Concomitant]
     Route: 048
     Dates: end: 20110418
  5. MYONAL [Concomitant]
     Route: 048
     Dates: end: 20110418
  6. NABOAL SR [Concomitant]
     Dosage: 2 DF
     Route: 048
     Dates: end: 20110418
  7. DOPS [Concomitant]
     Dosage: 3 DF
     Route: 048
     Dates: end: 20110418
  8. ARICEPT [Suspect]
     Indication: DEMENTIA ALZHEIMER'S TYPE
     Route: 048
     Dates: start: 20110120, end: 20110418
  9. EC DOPARL [Concomitant]
     Dosage: 3 DF
     Route: 048
     Dates: end: 20110418
  10. SELBEX [Concomitant]
     Route: 048
     Dates: end: 20110418

REACTIONS (2)
  - GASTRIC ULCER HAEMORRHAGE [None]
  - PNEUMONIA ASPIRATION [None]
